FAERS Safety Report 23217730 (Version 1)
Quarter: 2023Q4

REPORT INFORMATION
  Report Type: Spontaneous
  Country: CN (occurrence: CN)
  Receive Date: 20231122
  Receipt Date: 20231122
  Transmission Date: 20240110
  Serious: Yes (Hospitalization, Disabling)
  Sender: FDA-Public Use
  Company Number: CN-BAYER-2023A165878

PATIENT
  Age: 58 Year
  Sex: Male
  Weight: 60 kg

DRUGS (2)
  1. GLUCOBAY [Suspect]
     Active Substance: ACARBOSE
     Indication: Type 2 diabetes mellitus
     Dosage: 0.1 G, TID
     Route: 048
     Dates: start: 202310, end: 20231110
  2. GLUCOBAY [Suspect]
     Active Substance: ACARBOSE
     Indication: Myopathy

REACTIONS (2)
  - Hepatic function abnormal [Recovering/Resolving]
  - Blood glucose abnormal [None]

NARRATIVE: CASE EVENT DATE: 20230101
